FAERS Safety Report 22794827 (Version 3)
Quarter: 2023Q4

REPORT INFORMATION
  Report Type: Report from Study
  Country: ES (occurrence: ES)
  Receive Date: 20230807
  Receipt Date: 20231023
  Transmission Date: 20240109
  Serious: Yes (Hospitalization)
  Sender: FDA-Public Use
  Company Number: ES-PFIZER INC-PV202300132817

PATIENT
  Age: 72 Year
  Sex: Female
  Weight: 48.5 kg

DRUGS (7)
  1. ENCORAFENIB [Suspect]
     Active Substance: ENCORAFENIB
     Indication: Intestinal adenocarcinoma
     Dosage: 300 MG, 1X/DAY
     Route: 048
     Dates: start: 20230706, end: 20230731
  2. CETUXIMAB [Suspect]
     Active Substance: CETUXIMAB
     Indication: Intestinal adenocarcinoma
     Dosage: 500 MG/M2, EVERY 2 WEEKS
     Route: 042
     Dates: start: 20230706, end: 20230731
  3. PEMBROLIZUMAB [Suspect]
     Active Substance: PEMBROLIZUMAB
     Indication: Intestinal adenocarcinoma
     Dosage: 400 MG, EVERY 6 WEEKS
     Route: 042
     Dates: start: 20230706, end: 20230731
  4. CALCIUM PIDOLATE/COLECALCIFEROL [Concomitant]
     Indication: Osteoporosis
     Dosage: 1 CAPSULE, CALCIUM PIDOLATE AND CHOLECALCIFEROL
     Route: 048
  5. CALCIFEDIOL [Concomitant]
     Active Substance: CALCIFEDIOL
     Indication: Osteoporosis
     Dosage: ONCE A MONTH OR EVERY 2 WEEKS IN WINTER
  6. ZOLEDRONIC ACID [Concomitant]
     Active Substance: ZOLEDRONIC ACID
     Indication: Osteoporosis
     Dosage: ONCE EVERY ONE YEAR AND A HALF
     Dates: start: 201908
  7. DOXYCYCLINE [Concomitant]
     Active Substance: DOXYCYCLINE
     Indication: Prophylaxis
     Dosage: ONCE A DAY
     Dates: start: 20230705

REACTIONS (1)
  - Guillain-Barre syndrome [Not Recovered/Not Resolved]

NARRATIVE: CASE EVENT DATE: 20230731
